FAERS Safety Report 9317903 (Version 1)
Quarter: 2013Q2

REPORT INFORMATION
  Report Type: Spontaneous
  Country: US (occurrence: US)
  Receive Date: 20130530
  Receipt Date: 20130530
  Transmission Date: 20140414
  Serious: No
  Sender: FDA-Public Use
  Company Number: US-GLAXOSMITHKLINE-A0994519A

PATIENT
  Age: 41 Year
  Sex: Female

DRUGS (19)
  1. VENTOLIN [Suspect]
     Indication: ASTHMA
     Dosage: 2PUFF VARIABLE DOSE
     Route: 055
     Dates: start: 1999
  2. SINGULAIR [Concomitant]
  3. ZYRTEC [Concomitant]
  4. AMITRIPTYLIN [Concomitant]
  5. CLONOPIN [Concomitant]
  6. DEXILANT [Concomitant]
  7. AMBIEN [Concomitant]
  8. MAXALT [Concomitant]
  9. JUNEL [Concomitant]
  10. LOPRESSOR [Concomitant]
  11. SYNTHROID [Concomitant]
  12. TRAMADOL [Concomitant]
  13. TESSALON PEARLS [Concomitant]
  14. PREDNISONE [Concomitant]
  15. Z-PACK [Concomitant]
  16. LOPRESSOR [Concomitant]
  17. UNKNOWN DRUG [Concomitant]
  18. GLIPIZIDE [Concomitant]
  19. NEBULIZER [Concomitant]

REACTIONS (1)
  - Overdose [Recovering/Resolving]
